FAERS Safety Report 7317134-4 (Version None)
Quarter: 2011Q1

REPORT INFORMATION
  Report Type: 
  Country: None (occurrence: None)
  Receive Date: 20110226
  Receipt Date: 20100930
  Transmission Date: 20110831
  Serious: No
  Sender: FDA-Public Use
  Company Number: US-ALLERGAN-1012653US

PATIENT
  Age: 30 Year
  Sex: Male

DRUGS (1)
  1. BOTOXA? [Suspect]
     Indication: HYPERHIDROSIS
     Dosage: 200 UNITS, SINGLE
     Route: 023
     Dates: start: 20100826, end: 20100826

REACTIONS (1)
  - DRUG INEFFECTIVE [None]
